FAERS Safety Report 13118376 (Version 2)
Quarter: 2018Q1

REPORT INFORMATION
  Report Type: Spontaneous
  Country: US (occurrence: US)
  Receive Date: 20170116
  Receipt Date: 20180223
  Transmission Date: 20180508
  Serious: Yes (Other)
  Sender: FDA-Public Use
  Company Number: US-BAYER-2017-008171

PATIENT
  Age: 37 Year
  Sex: Female
  Weight: 95.2 kg

DRUGS (2)
  1. MIRENA [Suspect]
     Active Substance: LEVONORGESTREL
     Indication: CONTRACEPTION
  2. MIRENA [Suspect]
     Active Substance: LEVONORGESTREL
     Indication: CONTRACEPTION
     Dosage: 20 MCG/24HR, CONT
     Route: 015
     Dates: start: 20110107, end: 20170104

REACTIONS (5)
  - Drug ineffective [None]
  - Device use issue [None]
  - Hypertension [None]
  - Pregnancy with contraceptive device [Recovered/Resolved]
  - Gestational diabetes [None]

NARRATIVE: CASE EVENT DATE: 2017
